FAERS Safety Report 8827319 (Version 1)
Quarter: 2012Q4

REPORT INFORMATION
  Report Type: 
  Country: CA (occurrence: CA)
  Receive Date: 20121008
  Receipt Date: 20121008
  Transmission Date: 20130627
  Serious: Yes (Other)
  Sender: FDA-Public Use
  Company Number: CA-SP-2012-09171

PATIENT
  Age: 75 Year
  Sex: Male

DRUGS (2)
  1. BCG THERAPEUTICS [Suspect]
     Indication: BLADDER CANCER
     Dosage: Not reported
  2. DMARD [Concomitant]
     Indication: RHEUMATOID ARTHRITIS
     Dosage: Not reported

REACTIONS (1)
  - Bovine tuberculosis [Unknown]
